FAERS Safety Report 8096492 (Version 11)
Quarter: 2015Q3

REPORT INFORMATION
  Report Type: Spontaneous
  Country: US (occurrence: US)
  Receive Date: 20110818
  Receipt Date: 20150904
  Transmission Date: 20151125
  Serious: Yes (Other)
  Sender: FDA-Public Use
  Company Number: US-GLAXOSMITHKLINE-A0940528A

PATIENT
  Age: 76 Year
  Sex: Female

DRUGS (6)
  1. ADVAIR HFA [Suspect]
     Active Substance: FLUTICASONE PROPIONATE\SALMETEROL XINAFOATE
     Dosage: UNK
  2. SYNTHROID [Concomitant]
     Active Substance: LEVOTHYROXINE SODIUM
  3. ADVAIR HFA [Suspect]
     Active Substance: FLUTICASONE PROPIONATE\SALMETEROL XINAFOATE
     Indication: CHRONIC OBSTRUCTIVE PULMONARY DISEASE
     Dosage: 1 PUFF(S), BID
     Route: 055
     Dates: start: 2009
  4. ADVAIR HFA [Suspect]
     Active Substance: FLUTICASONE PROPIONATE\SALMETEROL XINAFOATE
     Dosage: UNK
     Dates: start: 2009
  5. TENORMIN [Concomitant]
     Active Substance: ATENOLOL
  6. NORVASC [Concomitant]
     Active Substance: AMLODIPINE BESYLATE

REACTIONS (10)
  - Cataract [Unknown]
  - Gingival pain [Unknown]
  - Metastatic neoplasm [Not Recovered/Not Resolved]
  - Dental caries [Unknown]
  - Mouth ulceration [Unknown]
  - Tooth injury [Unknown]
  - Cataract operation [Unknown]
  - Impaired healing [Unknown]
  - Blindness [Unknown]
  - Gingival discolouration [Unknown]

NARRATIVE: CASE EVENT DATE: 20111229
